FAERS Safety Report 16073139 (Version 1)
Quarter: 2019Q1

REPORT INFORMATION
  Report Type: Other
  Country: None (occurrence: US)
  Receive Date: 20190314
  Receipt Date: 20190314
  Transmission Date: 20190418
  Serious: No
  Sender: FDA-Public Use
  Company Number: US-MEDAC PHARMA, INC.-2063990

PATIENT
  Age: 41 Year
  Sex: Female
  Weight: 79.1 kg

DRUGS (17)
  1. ONCASPAR [Suspect]
     Active Substance: PEGASPARGASE
  2. ONDANSETRON HYDROCHLORIDE. [Concomitant]
     Active Substance: ONDANSETRON HYDROCHLORIDE
  3. METHOTREXATE. [Suspect]
     Active Substance: METHOTREXATE
  4. LEUPRORELIN ACETATE [Concomitant]
     Active Substance: LEUPROLIDE ACETATE
  5. PEG-3350 AND ELECTROLYTES [Concomitant]
     Active Substance: POLYETHYLENE GLYCOL 3350\POTASSIUM CHLORIDE\SODIUM BICARBONATE\SODIUM CHLORIDE\SODIUM SULFATE\SODIUM SULFATE ANHYDROUS
  6. PROCHLORPERAZINE EDISYLATE. [Concomitant]
     Active Substance: PROCHLORPERAZINE EDISYLATE
  7. ZOPICLONE ACTAVIS [Concomitant]
     Active Substance: ZOPICLONE
  8. DIMENHYDRINATE. [Concomitant]
     Active Substance: DIMENHYDRINATE
  9. CALCIUM CARBONATE. [Concomitant]
     Active Substance: CALCIUM CARBONATE
  10. SULFAMETHOXAZOLE, TRIMETHOPRIM [Concomitant]
     Active Substance: SULFAMETHOXAZOLE\TRIMETHOPRIM
  11. OLANZAPINE. [Concomitant]
     Active Substance: OLANZAPINE
  12. VALACICLOVIR [Concomitant]
     Active Substance: VALACYCLOVIR HYDROCHLORIDE
  13. LORAZEPAM. [Concomitant]
     Active Substance: LORAZEPAM
  14. HYDROMORPHONE HYDROCHLORIDE. [Concomitant]
     Active Substance: HYDROMORPHONE HYDROCHLORIDE
  15. INNOHEP [Concomitant]
     Active Substance: TINZAPARIN SODIUM
  16. PARACETAMOL [Concomitant]
     Active Substance: ACETAMINOPHEN
  17. NYSTATIN. [Concomitant]
     Active Substance: NYSTATIN

REACTIONS (6)
  - Malaise [Unknown]
  - Bacterial infection [Unknown]
  - Body temperature increased [Unknown]
  - Chills [Unknown]
  - Staphylococcal infection [Unknown]
  - Blood culture positive [Unknown]

NARRATIVE: CASE EVENT DATE: 20180917
